FAERS Safety Report 24944740 (Version 1)
Quarter: 2025Q1

REPORT INFORMATION
  Report Type: Spontaneous
  Country: FR (occurrence: FR)
  Receive Date: 20250208
  Receipt Date: 20250208
  Transmission Date: 20250409
  Serious: Yes (Other)
  Sender: TEVA
  Company Number: None

PATIENT
  Age: 96 Year
  Sex: Female
  Weight: 68 kg

DRUGS (3)
  1. COTRIMOXAZOLE [Suspect]
     Active Substance: SULFAMETHOXAZOLE\TRIMETHOPRIM
     Indication: Opportunistic infection prophylaxis
     Dosage: 1 CP ON MONDAY, WEDNESDAY AND FRIDAY: COTRIMOXAZOLE TEVA 800 MG/160 MG
     Route: 048
     Dates: start: 20240619, end: 20240911
  2. LENALIDOMIDE [Suspect]
     Active Substance: LENALIDOMIDE
     Indication: Plasma cell myeloma
     Dosage: 1/DAY FOR 3 WEEKS THEN 1 WEEK BREAK
     Route: 048
     Dates: start: 20240619, end: 20240913
  3. VALACYCLOVIR HYDROCHLORIDE [Suspect]
     Active Substance: VALACYCLOVIR HYDROCHLORIDE
     Indication: Opportunistic infection prophylaxis
     Dosage: 1 MORNING 1 EVENING: SCORED FILM-COATED TABLET
     Route: 048
     Dates: start: 20240619

REACTIONS (3)
  - Hepatic cytolysis [Recovering/Resolving]
  - Condition aggravated [Recovering/Resolving]
  - Cholestasis [Recovering/Resolving]

NARRATIVE: CASE EVENT DATE: 20240704
